FAERS Safety Report 15936793 (Version 1)
Quarter: 2019Q1

REPORT INFORMATION
  Report Type: Report from Study
  Country: US (occurrence: US)
  Receive Date: 20190208
  Receipt Date: 20190208
  Transmission Date: 20190417
  Serious: Yes (Other)
  Sender: FDA-Public Use
  Company Number: US-ASTRAZENECA-2019SE21210

PATIENT

DRUGS (4)
  1. OSIMERTINIB. [Suspect]
     Active Substance: OSIMERTINIB
     Indication: NON-SMALL CELL LUNG CANCER
     Route: 048
  2. CARBOPLATIN. [Concomitant]
     Active Substance: CARBOPLATIN
  3. ERLOTINIB [Concomitant]
     Active Substance: ERLOTINIB
  4. PEMETREXED. [Concomitant]
     Active Substance: PEMETREXED

REACTIONS (3)
  - Metastases to liver [Unknown]
  - Acquired gene mutation [Unknown]
  - Drug resistance [Unknown]
